FAERS Safety Report 25090029 (Version 1)
Quarter: 2025Q1

REPORT INFORMATION
  Report Type: Spontaneous
  Country: US (occurrence: None)
  Receive Date: 20250317
  Receipt Date: 20250317
  Transmission Date: 20250409
  Serious: Yes (Other)
  Sender: FDA-CTU
  Company Number: None

PATIENT
  Age: 60 Year
  Sex: Female
  Weight: 64 kg

DRUGS (1)
  1. SAPHNELO [Suspect]
     Active Substance: ANIFROLUMAB-FNIA
     Indication: Systemic lupus erythematosus
     Route: 040
     Dates: start: 20231026, end: 20240409

REACTIONS (9)
  - Fatigue [None]
  - Palpitations [None]
  - Drug eruption [None]
  - Hypoaesthesia [None]
  - Disturbance in attention [None]
  - Muscular weakness [None]
  - Chest discomfort [None]
  - Arthralgia [None]
  - Infusion related reaction [None]

NARRATIVE: CASE EVENT DATE: 20240405
